FAERS Safety Report 5917504-2 (Version None)
Quarter: 2008Q4

REPORT INFORMATION
  Report Type: 
  Country: None (occurrence: None)
  Receive Date: 20081014
  Receipt Date: 20081006
  Transmission Date: 20090506
  Serious: Yes (Other)
  Sender: FDA-Public Use
  Company Number: JP-BAYER-200812182BYL

PATIENT
  Age: 75 Year
  Sex: Male
  Weight: 83 kg

DRUGS (3)
  1. GLUCOBAY [Suspect]
     Indication: DIABETES MELLITUS
     Dosage: TOTAL DAILY DOSE: 300 MG  UNIT DOSE: 100 MG
     Route: 048
     Dates: start: 20080107, end: 20080917
  2. ATELEC [Concomitant]
     Route: 048
     Dates: start: 20060424
  3. DIOVAN [Concomitant]
     Route: 048
     Dates: start: 20060607

REACTIONS (3)
  - ABDOMINAL DISTENSION [None]
  - MEGACOLON [None]
  - SUBILEUS [None]
